FAERS Safety Report 20792016 (Version 1)
Quarter: 2022Q2

REPORT INFORMATION
  Report Type: Spontaneous
  Country: ES (occurrence: ES)
  Receive Date: 20220505
  Receipt Date: 20220505
  Transmission Date: 20220721
  Serious: Yes (Other)
  Sender: FDA-Public Use
  Company Number: ES-002147023-NVSC2022ES095718

PATIENT
  Age: 44 Year
  Sex: Female

DRUGS (8)
  1. AIMOVIG [Suspect]
     Active Substance: ERENUMAB-AOOE
     Indication: Migraine
     Dosage: 70 MILLIGRAM
     Route: 065
  2. AIMOVIG [Suspect]
     Active Substance: ERENUMAB-AOOE
     Dosage: 70 MILLIGRAM
     Route: 058
     Dates: start: 20220119, end: 20220408
  3. BOTOX [Concomitant]
     Active Substance: ONABOTULINUMTOXINA
     Indication: Migraine
     Dosage: 155 INTERNATIONAL UNIT
     Route: 065
     Dates: start: 202111
  4. BOTOX [Concomitant]
     Active Substance: ONABOTULINUMTOXINA
     Dosage: 195 INTERNATIONAL UNIT
     Route: 065
     Dates: start: 20211216
  5. TOPIRAMATE [Concomitant]
     Active Substance: TOPIRAMATE
     Indication: Migraine
     Dosage: 100 MILLIGRAM, QD
     Route: 065
  6. FLUOXETINE [Concomitant]
     Active Substance: FLUOXETINE HYDROCHLORIDE
     Indication: Anxiety disorder
     Dosage: 20 MILLIGRAM
     Route: 065
  7. IBUPROFEN [Concomitant]
     Active Substance: IBUPROFEN
     Indication: Migraine
     Dosage: UNK
     Route: 065
  8. ELETRIPTAN HYDROBROMIDE [Concomitant]
     Active Substance: ELETRIPTAN HYDROBROMIDE
     Indication: Migraine
     Dosage: UNK, AS A RESCUE
     Route: 065

REACTIONS (4)
  - Constipation [Not Recovered/Not Resolved]
  - Abdominal distension [Not Recovered/Not Resolved]
  - Decreased appetite [Not Recovered/Not Resolved]
  - Incorrect product administration duration [Not Recovered/Not Resolved]
